FAERS Safety Report 9080162 (Version 1)
Quarter: 2013Q1

REPORT INFORMATION
  Report Type: Spontaneous
  Country: GB (occurrence: GB)
  Receive Date: 20130218
  Receipt Date: 20130218
  Transmission Date: 20140127
  Serious: Yes (Hospitalization)
  Sender: FDA-Public Use
  Company Number: PHHY2013GB013658

PATIENT
  Age: 87 Year
  Sex: Male
  Weight: 69.6 kg

DRUGS (6)
  1. DONEPEZIL [Suspect]
     Indication: DEMENTIA
     Dosage: 10 MG, QD
     Route: 048
     Dates: end: 20130130
  2. CIMETIDINE [Concomitant]
  3. SIMVASTATIN [Concomitant]
  4. THIAMINE HYDROCHLORIDE [Concomitant]
  5. VITAMIN B COMPLEX [Concomitant]
  6. FYBOGEL MEBEVERINE [Concomitant]

REACTIONS (6)
  - Hyperhidrosis [Unknown]
  - Cold sweat [Unknown]
  - Loss of consciousness [Unknown]
  - Bradycardia [Recovering/Resolving]
  - Syncope [Unknown]
  - Vomiting [Unknown]
